FAERS Safety Report 9503952 (Version 1)
Quarter: 2013Q3

REPORT INFORMATION
  Report Type: Spontaneous
  Country: US (occurrence: None)
  Receive Date: 20130905
  Receipt Date: 20130905
  Transmission Date: 20140515
  Serious: Yes (Other)
  Sender: FDA-Public Use
  Company Number: None

PATIENT
  Age: 62 Year
  Sex: Male
  Weight: 90.72 kg

DRUGS (8)
  1. ATORVASTIN [Suspect]
     Indication: BLOOD CHOLESTEROL INCREASED
     Route: 048
  2. METFORMIN [Concomitant]
  3. SPIRONOLACTONE [Concomitant]
  4. LISINOPRIL [Concomitant]
  5. LORATADINE [Concomitant]
  6. MULTIVITAMIN [Concomitant]
  7. ASPIRIN [Concomitant]
  8. FISH OIL CONCENTRATE [Concomitant]

REACTIONS (20)
  - Dizziness [None]
  - Abdominal discomfort [None]
  - Erythema [None]
  - Blister [None]
  - Asthenia [None]
  - Fatigue [None]
  - Dyspepsia [None]
  - Dysphonia [None]
  - Throat tightness [None]
  - Hypotension [None]
  - Feeling cold [None]
  - Cough [None]
  - Libido decreased [None]
  - Confusional state [None]
  - Dysuria [None]
  - Somnolence [None]
  - Abdominal discomfort [None]
  - Rash [None]
  - Swelling [None]
  - Dry mouth [None]
